FAERS Safety Report 8613154-8 (Version None)
Quarter: 2012Q3

REPORT INFORMATION
  Report Type: 
  Country: None (occurrence: None)
  Receive Date: 20120822
  Receipt Date: 20120731
  Transmission Date: 20120928
  Serious: Yes (Hospitalization, Disabling)
  Sender: FDA-Public Use
  Company Number: JP-009507513-1208JPN000298

PATIENT

DRUGS (7)
  1. PEG-INTRON [Suspect]
     Dosage: 1.5MCG/KG/WEEK
     Route: 058
     Dates: start: 20120605, end: 20120625
  2. MIGLITOL [Concomitant]
     Indication: DIABETES MELLITUS
     Route: 048
  3. TELAVIC [Suspect]
     Indication: HEPATITIS C
     Route: 048
     Dates: start: 20120605, end: 20120710
  4. METFORMIN HCL [Concomitant]
     Indication: DIABETES MELLITUS
     Route: 048
  5. REBETOL [Suspect]
     Indication: HEPATITIS C
     Route: 048
     Dates: start: 20120605, end: 20120710
  6. PEG-INTRON [Suspect]
     Indication: HEPATITIS C
     Dosage: 1.5MCG/KG
     Route: 058
     Dates: start: 20120605, end: 20120710
  7. PEG-INTRON [Suspect]
     Dosage: 50MCG/WEEK
     Route: 058
     Dates: start: 20120626, end: 20120709

REACTIONS (2)
  - HAEMOGLOBIN DECREASED [None]
  - ANAEMIA [None]
